FAERS Safety Report 4839422-3 (Version None)
Quarter: 2005Q4

REPORT INFORMATION
  Report Type: 
  Country: None (occurrence: None)
  Receive Date: 20051129
  Receipt Date: 20050328
  Transmission Date: 20060501
  Serious: No
  Sender: FDA-Public Use
  Company Number: US-GLAXOSMITHKLINE-A0551500A

PATIENT
  Age: 55 Year
  Sex: Female

DRUGS (10)
  1. WELLBUTRIN SR [Suspect]
     Indication: DEPRESSION
     Dosage: 150MG TWICE PER DAY
     Route: 048
     Dates: start: 20050327
  2. ADVAIR DISKUS 100/50 [Concomitant]
  3. SINGULAIR [Concomitant]
  4. PROVENTIL [Concomitant]
  5. INTAL [Concomitant]
  6. CARBIDOPA AND LEVODOPA [Concomitant]
  7. VITAMINS [Concomitant]
  8. LOPID [Concomitant]
  9. PREVACID [Concomitant]
  10. BEXTRA [Concomitant]

REACTIONS (1)
  - NIGHTMARE [None]
